FAERS Safety Report 11892377 (Version 1)
Quarter: 2016Q1

REPORT INFORMATION
  Report Type: Spontaneous
  Country: US (occurrence: US)
  Receive Date: 20160106
  Receipt Date: 20160106
  Transmission Date: 20160526
  Serious: No
  Sender: FDA-Public Use
  Company Number: US-009507513-1512USA011333

PATIENT

DRUGS (1)
  1. PROVENTIL [Suspect]
     Active Substance: ALBUTEROL
     Dosage: UNK UNK, UNKNOWN
     Route: 055

REACTIONS (2)
  - No adverse event [Unknown]
  - Inadequate aseptic technique in use of product [Unknown]
